FAERS Safety Report 5797108-5 (Version None)
Quarter: 2008Q3

REPORT INFORMATION
  Report Type: 
  Country: None (occurrence: None)
  Receive Date: 20080701
  Receipt Date: 20080626
  Transmission Date: 20090109
  Serious: Yes (Hospitalization)
  Sender: FDA-Public Use
  Company Number: CN-ASTRAZENECA-2008AP04648

PATIENT
  Age: 19 Year
  Sex: Female

DRUGS (9)
  1. SEROQUEL [Suspect]
     Indication: AFFECTIVE DISORDER
     Route: 048
     Dates: start: 20080501, end: 20080601
  2. SEROQUEL [Suspect]
     Indication: SLEEP DISORDER
     Route: 048
     Dates: start: 20080501, end: 20080601
  3. SEROQUEL [Suspect]
     Indication: DEPRESSION
     Route: 048
     Dates: start: 20080501, end: 20080601
  4. SEROQUEL [Suspect]
     Route: 048
  5. SEROQUEL [Suspect]
     Route: 048
  6. SEROQUEL [Suspect]
     Route: 048
  7. SEROQUEL [Suspect]
     Route: 048
  8. SEROQUEL [Suspect]
     Route: 048
  9. SEROQUEL [Suspect]
     Route: 048

REACTIONS (2)
  - JAUNDICE [None]
  - TRANSAMINASES INCREASED [None]
